FAERS Safety Report 20111075 (Version 1)
Quarter: 2021Q4

REPORT INFORMATION
  Report Type: Spontaneous
  Country: IR (occurrence: IR)
  Receive Date: 20211125
  Receipt Date: 20211125
  Transmission Date: 20220303
  Serious: Yes (Death, Other)
  Sender: FDA-Public Use
  Company Number: IR-GILEAD-2021-0557424

PATIENT
  Age: 58 Year
  Sex: Female

DRUGS (1)
  1. AMPHOTERICIN B [Suspect]
     Active Substance: AMPHOTERICIN B
     Indication: Rhinocerebral mucormycosis
     Dosage: 6 MG/KG, QD
     Route: 065

REACTIONS (3)
  - Drug ineffective [Fatal]
  - Off label use [Unknown]
  - Product use in unapproved indication [Unknown]
